FAERS Safety Report 5859234-1 (Version None)
Quarter: 2008Q3

REPORT INFORMATION
  Report Type: 
  Country: None (occurrence: None)
  Receive Date: 20080827
  Receipt Date: 20080819
  Transmission Date: 20090109
  Serious: Yes (Hospitalization)
  Sender: FDA-Public Use
  Company Number: JP-KINGPHARMUSA00001-K200800913

PATIENT

DRUGS (5)
  1. AVINZA [Suspect]
     Dosage: 30 MG, QD
     Route: 048
     Dates: start: 20070101
  2. NITRAZEPAM [Concomitant]
     Dosage: 5 MG, UNK
  3. ZOPICLONE [Concomitant]
     Dosage: 7.5 MG, UNK
  4. ZOLPIDEM TARTRATE [Concomitant]
     Dosage: 5 MG, UNK
     Dates: start: 20070601
  5. FLEET ENEMA                        /00103901/ [Concomitant]
     Dosage: 110 ML, SINGLE
     Route: 054

REACTIONS (7)
  - ABDOMINAL DISTENSION [None]
  - CONSTIPATION [None]
  - HEPATIC ENCEPHALOPATHY [None]
  - HYPERAMMONAEMIA [None]
  - LOSS OF CONSCIOUSNESS [None]
  - POSTOPERATIVE ADHESION [None]
  - VERTIGO [None]
